FAERS Safety Report 13429658 (Version 2)
Quarter: 2017Q2

REPORT INFORMATION
  Report Type: Spontaneous
  Country: FR (occurrence: FR)
  Receive Date: 20170412
  Receipt Date: 20170413
  Transmission Date: 20170830
  Serious: Yes (Hospitalization, Other)
  Sender: FDA-Public Use
  Company Number: FR-ASTRAZENECA-2017SE34867

PATIENT
  Age: 909 Month
  Sex: Female

DRUGS (4)
  1. TAGRISSO [Suspect]
     Active Substance: OSIMERTINIB
     Indication: BRONCHIAL CARCINOMA
     Route: 048
     Dates: start: 201607, end: 20170314
  2. LEVOTHYROX [Suspect]
     Active Substance: LEVOTHYROXINE
     Indication: HYPOTHYROIDISM
     Route: 048
  3. TAGRISSO [Suspect]
     Active Substance: OSIMERTINIB
     Indication: BRONCHIAL CARCINOMA
     Route: 048
  4. TOPALGIC (FRANCE) [Suspect]
     Active Substance: TRAMADOL
     Route: 048
     Dates: start: 20170210, end: 20170227

REACTIONS (3)
  - Inflammation [Unknown]
  - Interstitial lung disease [Recovered/Resolved]
  - Paraesthesia [Not Recovered/Not Resolved]

NARRATIVE: CASE EVENT DATE: 201702
